FAERS Safety Report 19837736 (Version 1)
Quarter: 2021Q3

REPORT INFORMATION
  Report Type: Spontaneous
  Country: DE (occurrence: DE)
  Receive Date: 20210916
  Receipt Date: 20210916
  Transmission Date: 20211014
  Serious: Yes (Hospitalization, Other)
  Sender: FDA-Public Use
  Company Number: DE-TEVA-2021-DE-1951443

PATIENT
  Age: 89 Year
  Sex: Male
  Weight: 75 kg

DRUGS (8)
  1. ACETYLSALICYLSAURE [Concomitant]
     Active Substance: ASPIRIN
     Dosage: 100 MILLIGRAM DAILY;   1?0?0?0,
     Route: 048
  2. DONEPEZIL. [Concomitant]
     Active Substance: DONEPEZIL
     Dosage: 10 MILLIGRAM DAILY;  1?0?0?0,
     Route: 048
  3. SIMVASTATIN. [Concomitant]
     Active Substance: SIMVASTATIN
     Dosage: 20 MILLIGRAM DAILY;  0?0?1?0
     Route: 048
  4. TORASEMID [Suspect]
     Active Substance: TORSEMIDE
     Dosage: 5 MILLIGRAM DAILY; 10 MG, 0.5?0?0?0
     Route: 048
  5. DIMETINDEN [Concomitant]
     Active Substance: DIMETHINDENE
     Dosage: 1 MG, REQUIREMENT, DROPS
     Route: 048
  6. ALLOPURINOL. [Concomitant]
     Active Substance: ALLOPURINOL
     Dosage: 100 MILLIGRAM DAILY;  1?0?0?0,
     Route: 048
  7. HYDROCHLOROTHIAZID/RAMIPRIL [Suspect]
     Active Substance: HYDROCHLOROTHIAZIDE\RAMIPRIL
     Dosage: .5 DOSAGE FORMS DAILY; 25|5 MG, 0.5?0?0?0,
     Route: 048
  8. CITALOPRAM [Concomitant]
     Active Substance: CITALOPRAM HYDROBROMIDE
     Dosage: 20 MILLIGRAM DAILY;  1?0?0?0,
     Route: 048

REACTIONS (4)
  - Fatigue [Unknown]
  - Weight decreased [Unknown]
  - General physical health deterioration [Unknown]
  - Acute kidney injury [Unknown]
